FAERS Safety Report 18259998 (Version 1)
Quarter: 2020Q3

REPORT INFORMATION
  Report Type: Spontaneous
  Country: US (occurrence: US)
  Receive Date: 20200912
  Receipt Date: 20200912
  Transmission Date: 20201103
  Serious: Yes (Other)
  Sender: FDA-Public Use
  Company Number: US-NOVOPROD-751831

PATIENT
  Age: 77 Year
  Sex: Male

DRUGS (2)
  1. INSULIN ASPART INJECTION [Suspect]
     Active Substance: INSULIN ASPART
     Indication: TYPE 1 DIABETES MELLITUS
     Dosage: 40 IU, QD (40 UNITS A DAY, SLIDING SCALE)
     Route: 058
     Dates: start: 202003
  2. LEVEMIR [Concomitant]
     Active Substance: INSULIN DETEMIR
     Indication: TYPE 1 DIABETES MELLITUS
     Dosage: 24 IU, QD (12 UNITS TWICE A DAY, SLIDING SCALE)
     Route: 058
     Dates: start: 2005

REACTIONS (4)
  - Therapeutic product effect delayed [Not Recovered/Not Resolved]
  - Blood creatine increased [Not Recovered/Not Resolved]
  - Glycosylated haemoglobin increased [Not Recovered/Not Resolved]
  - Blood glucose increased [Not Recovered/Not Resolved]
